FAERS Safety Report 17348129 (Version 1)
Quarter: 2020Q1

REPORT INFORMATION
  Report Type: Report from Study
  Country: FR (occurrence: FR)
  Receive Date: 20200129
  Receipt Date: 20200129
  Transmission Date: 20200409
  Serious: No
  Sender: FDA-Public Use
  Company Number: FR-EXELIXIS-CABO-19025633

PATIENT
  Sex: Female

DRUGS (1)
  1. CABOMETYX [Suspect]
     Active Substance: CABOZANTINIB S-MALATE
     Indication: RENAL CELL CARCINOMA
     Dosage: UNK UNK, QD
     Route: 048

REACTIONS (8)
  - Fatigue [Unknown]
  - Dizziness [Unknown]
  - Dry skin [Unknown]
  - Rash [Unknown]
  - Decreased appetite [Unknown]
  - Nausea [Unknown]
  - Blood pressure abnormal [Unknown]
  - Diarrhoea [Unknown]
